FAERS Safety Report 11291142 (Version 1)
Quarter: 2015Q3

REPORT INFORMATION
  Report Type: Spontaneous
  Country: US (occurrence: US)
  Receive Date: 20150722
  Receipt Date: 20150722
  Transmission Date: 20151125
  Serious: No
  Sender: FDA-Public Use
  Company Number: US-UNITED THERAPEUTICS-UNT-2015-005598

PATIENT
  Sex: Female
  Weight: 61.68 kg

DRUGS (5)
  1. REMODULIN [Suspect]
     Active Substance: TREPROSTINIL
     Dosage: UNK
     Route: 058
     Dates: start: 201505
  2. REMODULIN [Suspect]
     Active Substance: TREPROSTINIL
     Dosage: 0.024 ?G/KG/MIN, CONTINUING
     Route: 058
     Dates: start: 20150515
  3. REMODULIN [Suspect]
     Active Substance: TREPROSTINIL
     Indication: PULMONARY HYPERTENSION
     Dosage: 0.016 ?G/KG/MIN, CONTINUING
     Route: 041
     Dates: start: 20150515
  4. ADEMPAS [Concomitant]
     Active Substance: RIOCIGUAT
     Indication: PRODUCT USED FOR UNKNOWN INDICATION
  5. LETAIRIS [Suspect]
     Active Substance: AMBRISENTAN
     Indication: PRODUCT USED FOR UNKNOWN INDICATION
     Dosage: 10 MG, QID
     Route: 065
     Dates: start: 20150128

REACTIONS (6)
  - Pain in extremity [Unknown]
  - Oedema peripheral [Unknown]
  - Infusion site erythema [Unknown]
  - Tachycardia [Unknown]
  - Infusion site pain [Unknown]
  - Oedema [Unknown]

NARRATIVE: CASE EVENT DATE: 2015
